FAERS Safety Report 12780365 (Version 1)
Quarter: 2016Q3

REPORT INFORMATION
  Report Type: Spontaneous
  Country: US (occurrence: US)
  Receive Date: 20160923
  Receipt Date: 20160923
  Transmission Date: 20161109
  Serious: Yes (Other)
  Sender: FDA-Public Use
  Company Number: None

PATIENT
  Age: 40 Year
  Sex: Female
  Weight: 70.65 kg

DRUGS (10)
  1. OMEPRAZOLE. [Concomitant]
     Active Substance: OMEPRAZOLE
  2. VITAMIN D [Concomitant]
     Active Substance: CHOLECALCIFEROL
  3. MULTIVITAMIN [Concomitant]
     Active Substance: VITAMINS
  4. AMPYRA [Concomitant]
     Active Substance: DALFAMPRIDINE
  5. MAGNESIUM [Concomitant]
     Active Substance: MAGNESIUM
  6. MINOCYCLINE [Concomitant]
     Active Substance: MINOCYCLINE\MINOCYCLINE HYDROCHLORIDE
  7. BIOTIN [Concomitant]
     Active Substance: BIOTIN
  8. GILENYA [Suspect]
     Active Substance: FINGOLIMOD HYDROCHLORIDE
     Indication: MULTIPLE SCLEROSIS
     Route: 048
     Dates: start: 20160705, end: 20160915
  9. VITAMIN D [Concomitant]
     Active Substance: CHOLECALCIFEROL
  10. CRANBERRY. [Concomitant]
     Active Substance: CRANBERRY

REACTIONS (2)
  - Hypoaesthesia [None]
  - Feeling abnormal [None]

NARRATIVE: CASE EVENT DATE: 20160814
